FAERS Safety Report 5235647-6 (Version None)
Quarter: 2007Q1

REPORT INFORMATION
  Report Type: 
  Country: None (occurrence: None)
  Receive Date: 20061208
  Receipt Date: 20060501
  Transmission Date: 20070707
  Serious: Yes (Other)
  Sender: FDA-Public Use
  Company Number: 2006UW07856

PATIENT
  Age: 73 Year
  Sex: Male
  Weight: 85.728 kg

DRUGS (9)
  1. CRESTOR [Suspect]
     Indication: BLOOD CHOLESTEROL INCREASED
     Dosage: 20 MG PO
     Route: 048
     Dates: start: 20060301
  2. WELLBUTRIN [Concomitant]
  3. EFFEXOR [Concomitant]
  4. ATENOLOL [Concomitant]
  5. FEDLODIPINE [Concomitant]
  6. LESONOPRIL [Concomitant]
  7. LASIX [Concomitant]
  8. METFORMIN HCL [Concomitant]
  9. COUMADIN [Concomitant]

REACTIONS (2)
  - BLOOD PRESSURE DECREASED [None]
  - DIABETES MELLITUS INADEQUATE CONTROL [None]
